FAERS Safety Report 4696873-8 (Version None)
Quarter: 2005Q2

REPORT INFORMATION
  Report Type: 
  Country: None (occurrence: None)
  Receive Date: 20050127
  Receipt Date: 20050127
  Transmission Date: 20051028
  Serious: No
  Sender: FDA-Public Use
  Company Number: None

PATIENT

DRUGS (1)
  1. PERCOCET (GENERIC FORM) [Suspect]
     Indication: PAIN
     Dosage: 5/325 ONE Q 4-6 PRN

REACTIONS (2)
  - FEELING JITTERY [None]
  - THERAPEUTIC RESPONSE UNEXPECTED WITH DRUG SUBSTITUTION [None]
